FAERS Safety Report 16785899 (Version 2)
Quarter: 2020Q2

REPORT INFORMATION
  Report Type: Spontaneous
  Country: US (occurrence: US)
  Receive Date: 20190909
  Receipt Date: 20200408
  Transmission Date: 20200713
  Serious: Yes (Other)
  Sender: FDA-Public Use
  Company Number: US-GILEAD-2019-0426594

PATIENT
  Sex: Female

DRUGS (3)
  1. BIKTARVY [Concomitant]
     Active Substance: BICTEGRAVIR SODIUM\EMTRICITABINE\TENOFOVIR ALAFENAMIDE FUMARATE
  2. GENVOYA [Concomitant]
     Active Substance: COBICISTAT\ELVITEGRAVIR\EMTRICITABINE\TENOFOVIR ALAFENAMIDE FUMARATE
  3. STRIBILD [Suspect]
     Active Substance: COBICISTAT\ELVITEGRAVIR\EMTRICITABINE\TENOFOVIR DISOPROXIL FUMARATE
     Indication: HIV INFECTION
     Dosage: UNK
     Route: 048
     Dates: start: 201209, end: 201906

REACTIONS (10)
  - Osteoporosis [Not Recovered/Not Resolved]
  - Nephropathy [Not Recovered/Not Resolved]
  - Emotional distress [Unknown]
  - Bone density decreased [Not Recovered/Not Resolved]
  - Economic problem [Unknown]
  - Anxiety [Unknown]
  - Anhedonia [Unknown]
  - Pain [Unknown]
  - Osteonecrosis [Not Recovered/Not Resolved]
  - Bone density abnormal [Unknown]

NARRATIVE: CASE EVENT DATE: 2015
